FAERS Safety Report 8425592-7 (Version None)
Quarter: 2012Q2

REPORT INFORMATION
  Report Type: 
  Country: None (occurrence: None)
  Receive Date: 20120601
  Receipt Date: 20120523
  Transmission Date: 20120825
  Serious: No
  Sender: FDA-Public Use
  Company Number: 2012SP026332

PATIENT

DRUGS (1)
  1. SYCREST (ASENAPINE) [Suspect]
     Indication: MANIA
     Dosage: 5 MG;BID;PO, 10 MG;QAM;PO
     Route: 048

REACTIONS (1)
  - HYPOTENSION [None]
